FAERS Safety Report 19032074 (Version 2)
Quarter: 2021Q1

REPORT INFORMATION
  Report Type: Report from Study
  Country: None (occurrence: US)
  Receive Date: 20210319
  Receipt Date: 20210323
  Transmission Date: 20210420
  Serious: Yes (Hospitalization, Other)
  Sender: FDA-Public Use
  Company Number: US-ABBVIE-21K-163-3820644-00

PATIENT
  Sex: Male

DRUGS (8)
  1. ENBREL [Suspect]
     Active Substance: ETANERCEPT
     Indication: PRODUCT USED FOR UNKNOWN INDICATION
     Route: 065
  2. MORPHINE [Concomitant]
     Active Substance: MORPHINE
     Indication: PAIN
  3. HUMIRA [Suspect]
     Active Substance: ADALIMUMAB
     Indication: PRODUCT USED FOR UNKNOWN INDICATION
     Route: 058
  4. OXYCODONE [Concomitant]
     Active Substance: OXYCODONE
     Indication: PAIN
  5. XANAX [Concomitant]
     Active Substance: ALPRAZOLAM
     Indication: ANXIETY
  6. ORENCIA [Suspect]
     Active Substance: ABATACEPT
     Indication: PRODUCT USED FOR UNKNOWN INDICATION
     Route: 065
  7. PREDNISONE. [Suspect]
     Active Substance: PREDNISONE
     Indication: PRODUCT USED FOR UNKNOWN INDICATION
     Route: 065
  8. SIMPONI [Suspect]
     Active Substance: GOLIMUMAB
     Indication: PRODUCT USED FOR UNKNOWN INDICATION
     Route: 065

REACTIONS (21)
  - Diabetic coma [Unknown]
  - Joint noise [Recovered/Resolved]
  - Coronary arterial stent insertion [Recovered/Resolved]
  - Skin lesion [Recovered/Resolved]
  - Groin pain [Unknown]
  - Myocardial infarction [Unknown]
  - Joint injury [Recovered/Resolved]
  - Memory impairment [Not Recovered/Not Resolved]
  - Hypophagia [Unknown]
  - Stress [Not Recovered/Not Resolved]
  - Systemic lupus erythematosus [Unknown]
  - Rheumatoid arthritis [Unknown]
  - Emotional distress [Not Recovered/Not Resolved]
  - Diabetes mellitus [Unknown]
  - Drug ineffective [Recovered/Resolved]
  - Pain [Recovered/Resolved]
  - Joint lock [Recovered/Resolved]
  - Illness [Recovered/Resolved]
  - Drug ineffective [Recovering/Resolving]
  - Pneumonia [Recovered/Resolved]
  - Nightmare [Recovered/Resolved]
